FAERS Safety Report 7535291-1 (Version None)
Quarter: 2011Q2

REPORT INFORMATION
  Report Type: 
  Country: None (occurrence: None)
  Receive Date: 20110609
  Receipt Date: 20071211
  Transmission Date: 20111010
  Serious: Yes (Hospitalization)
  Sender: FDA-Public Use
  Company Number: PHFR2007IE03602

PATIENT
  Sex: Male

DRUGS (1)
  1. CLOZAPINE [Suspect]
     Indication: SCHIZOPHRENIA
     Route: 048
     Dates: start: 20010921

REACTIONS (3)
  - HEMIPARESIS [None]
  - TRANSIENT ISCHAEMIC ATTACK [None]
  - LOWER RESPIRATORY TRACT INFECTION [None]
